FAERS Safety Report 5009680-3 (Version None)
Quarter: 2006Q2

REPORT INFORMATION
  Report Type: 
  Country: None (occurrence: None)
  Receive Date: 20060524
  Receipt Date: 20060518
  Transmission Date: 20061013
  Serious: Yes (Disabling)
  Sender: FDA-Public Use
  Company Number: PHBS2006PE07386

PATIENT
  Age: 50 Year
  Sex: Female

DRUGS (4)
  1. TRILEPTAL [Suspect]
     Indication: TRIGEMINAL NEURALGIA
     Dosage: 300 MG, BID
     Route: 048
     Dates: start: 20050101
  2. TRILEPTAL [Suspect]
     Dosage: 1800-2400 MG/D
     Route: 048
     Dates: end: 20060515
  3. CALCIUM GLUCONATE [Concomitant]
  4. MULTIVITAMIN [Concomitant]

REACTIONS (7)
  - ASTHENIA [None]
  - CONDITION AGGRAVATED [None]
  - DECREASED APPETITE [None]
  - DRUG INEFFECTIVE [None]
  - DYSSTASIA [None]
  - SOMNOLENCE [None]
  - TRIGEMINAL NEURALGIA [None]
